FAERS Safety Report 4682841-9 (Version None)
Quarter: 2005Q2

REPORT INFORMATION
  Report Type: 
  Country: None (occurrence: None)
  Receive Date: 20050531
  Receipt Date: 20050311
  Transmission Date: 20051028
  Serious: Yes (Other)
  Sender: FDA-Public Use
  Company Number: 200510405US

PATIENT

DRUGS (4)
  1. LOVENOX [Suspect]
     Indication: PULMONARY EMBOLISM
     Dosage: 30 MG BID
  2. HEPARIN [Concomitant]
  3. WARFARIN SODIUM [Concomitant]
  4. . [Concomitant]

REACTIONS (2)
  - INTERNATIONAL NORMALISED RATIO INCREASED [None]
  - RECTAL HAEMORRHAGE [None]
